FAERS Safety Report 23933796 (Version 1)
Quarter: 2024Q2

REPORT INFORMATION
  Report Type: Spontaneous
  Country: US (occurrence: US)
  Receive Date: 20240603
  Receipt Date: 20240603
  Transmission Date: 20240716
  Serious: Yes (Other)
  Sender: FDA-Public Use
  Company Number: US-PFIZER INC-202400184248

PATIENT
  Age: 62 Year
  Sex: Female
  Weight: 74.84 kg

DRUGS (2)
  1. XELJANZ XR [Suspect]
     Active Substance: TOFACITINIB CITRATE
     Indication: Rheumatoid arthritis
     Dosage: 11 MG, 1X/DAY (1 TABLET A DAY AT NIGHT)
     Route: 048
     Dates: start: 2018, end: 2024
  2. MELOXICAM [Concomitant]
     Active Substance: MELOXICAM
     Indication: Pain
     Dosage: 15 MG, 1X/DAY (15MG TABLET ONCE A DAY IN MORNING)
     Route: 048
     Dates: start: 2012

REACTIONS (2)
  - Tooth infection [Recovered/Resolved]
  - Bone loss [Unknown]

NARRATIVE: CASE EVENT DATE: 20240101
